FAERS Safety Report 25322171 (Version 1)
Quarter: 2025Q2

REPORT INFORMATION
  Report Type: Spontaneous
  Country: CN (occurrence: CN)
  Receive Date: 20250516
  Receipt Date: 20250516
  Transmission Date: 20250716
  Serious: No
  Sender: ALKEM
  Company Number: CN-ALKEM LABORATORIES LIMITED-CN-ALKEM-2024-20861

PATIENT
  Age: 56 Year
  Sex: Male

DRUGS (8)
  1. RILUZOLE [Suspect]
     Active Substance: RILUZOLE
     Indication: Sjogren^s syndrome
     Dosage: 50 MILLIGRAM, BID
     Route: 048
  2. RILUZOLE [Suspect]
     Active Substance: RILUZOLE
     Indication: Amyotrophic lateral sclerosis
  3. METHYLPREDNISOLONE [Suspect]
     Active Substance: METHYLPREDNISOLONE
     Indication: Amyotrophic lateral sclerosis
     Dosage: 40 MILLIGRAM, QD
     Route: 042
  4. METHYLPREDNISOLONE [Suspect]
     Active Substance: METHYLPREDNISOLONE
     Indication: Sjogren^s syndrome
  5. HYDROXYCHLOROQUINE SULFATE [Suspect]
     Active Substance: HYDROXYCHLOROQUINE SULFATE
     Indication: Sjogren^s syndrome
     Dosage: 200 MILLIGRAM, BID
     Route: 065
  6. HYDROXYCHLOROQUINE SULFATE [Suspect]
     Active Substance: HYDROXYCHLOROQUINE SULFATE
     Indication: Amyotrophic lateral sclerosis
  7. PREDNISONE [Suspect]
     Active Substance: PREDNISONE
     Indication: Amyotrophic lateral sclerosis
     Dosage: 40 MILLIGRAM, QD
     Route: 048
  8. PREDNISONE [Suspect]
     Active Substance: PREDNISONE
     Indication: Sjogren^s syndrome

REACTIONS (1)
  - Therapy partial responder [Unknown]
